FAERS Safety Report 5927565-2 (Version None)
Quarter: 2008Q4

REPORT INFORMATION
  Report Type: 
  Country: None (occurrence: None)
  Receive Date: 20081020
  Receipt Date: 20081010
  Transmission Date: 20090506
  Serious: Yes (Hospitalization, Other)
  Sender: FDA-Public Use
  Company Number: 2008SP005968

PATIENT
  Age: 51 Year
  Sex: Female
  Weight: 108.4097 kg

DRUGS (27)
  1. PEG-INTRON [Suspect]
     Indication: HEPATITIS C
     Dosage: 180 MCG;QW;SC;SC
     Route: 058
     Dates: start: 20080305, end: 20080319
  2. PEG-INTRON [Suspect]
     Indication: HEPATITIS C
     Dosage: 180 MCG;QW;SC;SC
     Route: 058
     Dates: start: 20080326, end: 20080414
  3. REBETOL [Suspect]
     Indication: HEPATITIS C
     Dosage: 1400 MG; PO; PO
     Route: 048
     Dates: start: 20080305, end: 20080321
  4. REBETOL [Suspect]
     Indication: HEPATITIS C
     Dosage: 1400 MG; PO; PO
     Route: 048
     Dates: start: 20080326, end: 20080416
  5. BLINDED PEGINTERFERON ALFA-2B (S-P) [Suspect]
     Indication: DRUG USE FOR UNKNOWN INDICATION
     Dosage: 4.5 MG; IV; IV
     Route: 042
     Dates: start: 20080326, end: 20080414
  6. BLINDED PEGINTERFERON ALFA-2B (S-P) [Suspect]
     Indication: DRUG USE FOR UNKNOWN INDICATION
     Dosage: 4.5 MG; IV; IV
     Route: 042
     Dates: start: 20080305
  7. AVALIDE [Concomitant]
  8. VICOPROFEN [Concomitant]
  9. CYMBALTA [Concomitant]
  10. PREMARIN [Concomitant]
  11. FOLIC ACID [Concomitant]
  12. FISH OIL [Concomitant]
  13. VITAMIN B-12 [Concomitant]
  14. FLONASE [Concomitant]
  15. AUGMENTIN '125' [Concomitant]
  16. IMODIUM [Concomitant]
  17. WELLBUTRIN XL [Concomitant]
  18. MORPHINE SULFATE [Concomitant]
  19. OXYCONTIN [Concomitant]
  20. RELACORE [Concomitant]
  21. PHENERGAN HCL [Concomitant]
  22. CIPROFLAXACIN [Concomitant]
  23. ZOFRAN [Concomitant]
  24. TRAMADOL HCL [Concomitant]
  25. OXYCODONE HCL [Concomitant]
  26. FIBER-LAX [Concomitant]
  27. NEOSPORIN [Concomitant]

REACTIONS (15)
  - ANAEMIA [None]
  - DIARRHOEA [None]
  - HYPOVOLAEMIA [None]
  - LABORATORY TEST ABNORMAL [None]
  - LARYNGITIS [None]
  - LOSS OF CONSCIOUSNESS [None]
  - NEUTROPHIL COUNT DECREASED [None]
  - OROPHARYNGEAL PAIN [None]
  - RENAL FAILURE ACUTE [None]
  - RENAL INJURY [None]
  - RENAL TUBULAR NECROSIS [None]
  - RHABDOMYOLYSIS [None]
  - ROAD TRAFFIC ACCIDENT [None]
  - SPINAL COMPRESSION FRACTURE [None]
  - SYNCOPE [None]
